FAERS Safety Report 24617918 (Version 2)
Quarter: 2024Q4

REPORT INFORMATION
  Report Type: Spontaneous
  Country: CA (occurrence: None)
  Receive Date: 20241114
  Receipt Date: 20241205
  Transmission Date: 20250114
  Serious: Yes (Other)
  Sender: ORION
  Company Number: CA-PFIZER INC-202400295056

PATIENT
  Age: 60 Year
  Sex: Female

DRUGS (1)
  1. METHOTREXATE [Suspect]
     Active Substance: METHOTREXATE
     Indication: Rheumatoid arthritis
     Dosage: EVERY SATURDAY
     Dates: start: 201105

REACTIONS (5)
  - Localised infection [Recovered/Resolved]
  - Hyperkeratosis [Recovered/Resolved]
  - Discharge [Unknown]
  - Overdose [Unknown]
  - Tooth infection [Unknown]

NARRATIVE: CASE EVENT DATE: 20110501
